FAERS Safety Report 25944495 (Version 1)
Quarter: 2025Q4

REPORT INFORMATION
  Report Type: Spontaneous
  Country: JP (occurrence: JP)
  Receive Date: 20251021
  Receipt Date: 20251021
  Transmission Date: 20260117
  Serious: Yes (Other)
  Sender: DAIICHI
  Company Number: JP-DSJP-DS-2025-167887-JP

PATIENT
  Age: 52 Year
  Sex: Female

DRUGS (14)
  1. EDOXABAN TOSYLATE [Suspect]
     Active Substance: EDOXABAN TOSYLATE
     Indication: Anticoagulant therapy
     Dosage: 30 MG/DAY
     Route: 048
     Dates: start: 20230427
  2. GEMCITABINE [Suspect]
     Active Substance: GEMCITABINE
     Indication: Ovarian clear cell carcinoma
     Dosage: UNK
     Route: 065
     Dates: start: 2024
  3. GEMCITABINE [Suspect]
     Active Substance: GEMCITABINE
     Dosage: 800 MG/M2
     Route: 065
     Dates: start: 20240705
  4. GEMCITABINE [Suspect]
     Active Substance: GEMCITABINE
     Dosage: UNK
     Route: 065
     Dates: start: 20240903
  5. PACLITAXEL [Concomitant]
     Active Substance: PACLITAXEL
     Indication: Ovarian clear cell carcinoma
     Dosage: UNK
     Route: 065
     Dates: start: 2024
  6. CARBOPLATIN [Concomitant]
     Active Substance: CARBOPLATIN
     Indication: Ovarian clear cell carcinoma
     Dosage: UNK
     Route: 065
     Dates: start: 2024
  7. VANCOMYCIN [Concomitant]
     Active Substance: VANCOMYCIN
     Indication: Endocarditis
     Dosage: UNK
     Route: 065
  8. VANCOMYCIN [Concomitant]
     Active Substance: VANCOMYCIN
     Dosage: UNK
     Route: 042
  9. CEFTRIAXONE [Concomitant]
     Active Substance: CEFTRIAXONE
     Indication: Endocarditis
     Dosage: UNK
     Route: 065
  10. CEFTRIAXONE [Concomitant]
     Active Substance: CEFTRIAXONE
     Dosage: UNK
     Route: 042
  11. FAMOTIDINE [Concomitant]
     Active Substance: FAMOTIDINE
     Indication: Product used for unknown indication
     Dosage: UNK
     Route: 065
  12. MAGNESIUM OXIDE [Concomitant]
     Active Substance: MAGNESIUM OXIDE
     Indication: Product used for unknown indication
     Dosage: UNK
     Route: 065
  13. DAYVIGO [Concomitant]
     Active Substance: LEMBOREXANT
     Indication: Product used for unknown indication
     Dosage: UNK
     Route: 065
  14. ZOLPIDEM TARTRATE [Concomitant]
     Active Substance: ZOLPIDEM TARTRATE
     Indication: Product used for unknown indication
     Dosage: UNK
     Route: 065

REACTIONS (3)
  - Haematuria [Unknown]
  - Myelosuppression [Unknown]
  - Faecal occult blood positive [Unknown]
